FAERS Safety Report 8543250-5 (Version None)
Quarter: 2012Q3

REPORT INFORMATION
  Report Type: 
  Country: None (occurrence: None)
  Receive Date: 20120727
  Receipt Date: 20120404
  Transmission Date: 20120928
  Serious: Yes (Other)
  Sender: FDA-Public Use
  Company Number: JP-SP-2012-03756

PATIENT
  Age: 62 Year
  Sex: Male

DRUGS (1)
  1. IMMUCYST [Suspect]
     Indication: PRODUCT USED FOR UNKNOWN INDICATION
     Route: 043

REACTIONS (6)
  - URETHRITIS [None]
  - ARTHRITIS REACTIVE [None]
  - CONJUNCTIVITIS [None]
  - REITER'S SYNDROME [None]
  - ARTHRITIS [None]
  - DYSURIA [None]
